FAERS Safety Report 20156329 (Version 2)
Quarter: 2021Q4

REPORT INFORMATION
  Report Type: Spontaneous
  Country: CA (occurrence: CA)
  Receive Date: 20211207
  Receipt Date: 20211214
  Transmission Date: 20220303
  Serious: Yes (Death, Other)
  Sender: FDA-Public Use
  Company Number: CA-ASTELLAS-2021US045451

PATIENT
  Age: 91 Year
  Sex: Male

DRUGS (1)
  1. XTANDI [Suspect]
     Active Substance: ENZALUTAMIDE
     Indication: Product used for unknown indication
     Route: 065
     Dates: start: 202107, end: 202111

REACTIONS (7)
  - Death [Fatal]
  - Renal impairment [Unknown]
  - Condition aggravated [Unknown]
  - Urosepsis [Unknown]
  - Delirium [Unknown]
  - Urinary tract stoma complication [Unknown]
  - Stoma site infection [Unknown]

NARRATIVE: CASE EVENT DATE: 20210701
